FAERS Safety Report 19604960 (Version 1)
Quarter: 2021Q3

REPORT INFORMATION
  Report Type: Spontaneous
  Country: US (occurrence: US)
  Receive Date: 20210723
  Receipt Date: 20210723
  Transmission Date: 20211014
  Serious: Yes (Other)
  Sender: FDA-Public Use
  Company Number: US-PFIZER INC-202100934824

PATIENT
  Age: 11 Year
  Sex: Male
  Weight: 32 kg

DRUGS (1)
  1. BUPIVACAINE HYDROCHLORIDE/EPINEPHRINE [Suspect]
     Active Substance: BUPIVACAINE HYDROCHLORIDE\EPINEPHRINE
     Indication: LOCAL ANAESTHESIA
     Dosage: 10 ML (INJECTED THROUGH THE CATHETER OVER 1 MIN)
     Route: 034

REACTIONS (3)
  - Horner^s syndrome [Unknown]
  - Off label use [Unknown]
  - Temperature regulation disorder [Unknown]
